FAERS Safety Report 25899828 (Version 1)
Quarter: 2025Q4

REPORT INFORMATION
  Report Type: Other
  Country: GB (occurrence: GB)
  Receive Date: 20251009
  Receipt Date: 20251009
  Transmission Date: 20260117
  Serious: Yes (Other)
  Sender: STRIDES
  Company Number: GB-THERAMEX-2025000875

PATIENT
  Age: 58 Year
  Sex: Female

DRUGS (3)
  1. NAPROXEN [Suspect]
     Active Substance: NAPROXEN
     Indication: Arthralgia
     Dosage: UNK
     Route: 065
     Dates: start: 2024, end: 202503
  2. OMEPRAZOLE [Suspect]
     Active Substance: OMEPRAZOLE
     Indication: Arthralgia
     Dosage: UNK
     Route: 065
     Dates: end: 202503
  3. ESTRADIOL [Suspect]
     Active Substance: ESTRADIOL
     Indication: Hormone replacement therapy
     Dosage: ONE PATCH TWICE A WEEK
     Route: 062
     Dates: start: 2024, end: 202503

REACTIONS (7)
  - Application site rash [Not Recovered/Not Resolved]
  - Urticarial vasculitis [Not Recovered/Not Resolved]
  - Suspected product quality issue [Unknown]
  - Application site discomfort [Unknown]
  - Application site injury [Unknown]
  - Application site vesicles [Unknown]
  - Pain [Unknown]

NARRATIVE: CASE EVENT DATE: 20250201
